FAERS Safety Report 7356253-3 (Version None)
Quarter: 2011Q1

REPORT INFORMATION
  Report Type: 
  Country: None (occurrence: None)
  Receive Date: 20110316
  Receipt Date: 20110307
  Transmission Date: 20110831
  Serious: Yes (Other)
  Sender: FDA-Public Use
  Company Number: US-AMGEN-USASP2011012857

PATIENT
  Age: 65 Year
  Sex: Female

DRUGS (1)
  1. ENBREL [Suspect]
     Indication: RHEUMATOID ARTHRITIS
     Dosage: 25 MG, 2 TIMES/WK
     Dates: start: 20001001

REACTIONS (11)
  - CHONDROPATHY [None]
  - GAIT DISTURBANCE [None]
  - JOINT LOCK [None]
  - MUSCULOSKELETAL STIFFNESS [None]
  - HIATUS HERNIA [None]
  - PAIN [None]
  - HAND DEFORMITY [None]
  - GASTROOESOPHAGEAL REFLUX DISEASE [None]
  - JOINT CREPITATION [None]
  - MUSCULAR WEAKNESS [None]
  - FATIGUE [None]
